FAERS Safety Report 17774106 (Version 1)
Quarter: 2020Q2

REPORT INFORMATION
  Report Type: Spontaneous
  Country: US (occurrence: US)
  Receive Date: 20200513
  Receipt Date: 20200513
  Transmission Date: 20200714
  Serious: No
  Sender: FDA-Public Use
  Company Number: US-GLAXOSMITHKLINE-US2020077594

PATIENT
  Sex: Female

DRUGS (6)
  1. ALLI [Suspect]
     Active Substance: ORLISTAT
     Dosage: 2 CAPSULE
     Dates: start: 202002
  2. ALLI [Suspect]
     Active Substance: ORLISTAT
     Dosage: 2 CAPSULE
     Dates: start: 202002
  3. ALLI [Suspect]
     Active Substance: ORLISTAT
     Dosage: 2 CAPSULE
     Dates: start: 202002
  4. ALLI [Suspect]
     Active Substance: ORLISTAT
     Indication: WEIGHT LOSS DIET
     Dosage: 2 CAPSULE
     Dates: start: 202002
  5. ALLI [Suspect]
     Active Substance: ORLISTAT
     Dosage: 2 CAPSULE
     Dates: start: 202004
  6. ALLI [Suspect]
     Active Substance: ORLISTAT
     Dosage: UNK

REACTIONS (4)
  - Treatment noncompliance [Unknown]
  - Drug ineffective [Unknown]
  - Overdose [Unknown]
  - Steatorrhoea [Unknown]
